FAERS Safety Report 20527521 (Version 17)
Quarter: 2022Q3

REPORT INFORMATION
  Report Type: Report from Study
  Country: CO (occurrence: CO)
  Receive Date: 20220228
  Receipt Date: 20220902
  Transmission Date: 20221026
  Serious: Yes (Hospitalization, Disabling, Other)
  Sender: FDA-Public Use
  Company Number: CO-TAKEDA-CO202004419

PATIENT
  Age: 9 Year
  Sex: Male
  Weight: 33 kg

DRUGS (13)
  1. IDURSULFASE [Suspect]
     Active Substance: IDURSULFASE
     Indication: Mucopolysaccharidosis II
     Dosage: 17 MILLIGRAM, 1/WEEK
     Route: 042
     Dates: start: 20141209
  2. IDURSULFASE [Suspect]
     Active Substance: IDURSULFASE
     Dosage: 0.5 MILLIGRAM, 1/WEEK
     Route: 042
     Dates: start: 20141209
  3. IDURSULFASE [Suspect]
     Active Substance: IDURSULFASE
     Dosage: 17 MILLIGRAM, Q2WEEKS
     Route: 042
     Dates: start: 20141209
  4. IDURSULFASE [Suspect]
     Active Substance: IDURSULFASE
     Dosage: 16 MILLIGRAM, Q2WEEKS
     Route: 042
     Dates: start: 20141209
  5. IDURSULFASE [Suspect]
     Active Substance: IDURSULFASE
     Dosage: 17 MILLIGRAM
     Route: 042
     Dates: start: 20141209
  6. IDURSULFASE [Suspect]
     Active Substance: IDURSULFASE
     Dosage: 16 MILLIGRAM, 1/WEEK
     Route: 042
     Dates: start: 20150127
  7. IDURSULFASE [Suspect]
     Active Substance: IDURSULFASE
     Dosage: 16 MILLIGRAM
     Route: 042
     Dates: start: 20160106
  8. IDURSULFASE [Suspect]
     Active Substance: IDURSULFASE
     Dosage: 18 MILLIGRAM, 1/WEEK
     Route: 042
     Dates: start: 20170725
  9. IDURSULFASE [Suspect]
     Active Substance: IDURSULFASE
     Dosage: 16 MILLIGRAM
     Route: 042
     Dates: start: 20201006
  10. IDURSULFASE [Suspect]
     Active Substance: IDURSULFASE
     Dosage: 16 MILLIGRAM, 1/WEEK
     Route: 042
  11. IDURSULFASE [Suspect]
     Active Substance: IDURSULFASE
     Dosage: 18 MILLIGRAM, 1/WEEK
     Route: 042
     Dates: start: 20141209
  12. IDURSULFASE [Suspect]
     Active Substance: IDURSULFASE
     Dosage: 18 MILLIGRAM
     Route: 042
     Dates: start: 20141209
  13. TRAZODONE [Concomitant]
     Active Substance: TRAZODONE HYDROCHLORIDE
     Indication: Product used for unknown indication
     Dosage: 50 MILLIGRAM, QD
     Route: 048

REACTIONS (22)
  - Femur fracture [Not Recovered/Not Resolved]
  - Speech disorder [Not Recovered/Not Resolved]
  - Ill-defined disorder [Not Recovered/Not Resolved]
  - Seizure [Not Recovered/Not Resolved]
  - Catheter site inflammation [Recovering/Resolving]
  - Weight increased [Unknown]
  - Pain [Recovered/Resolved]
  - Fall [Not Recovered/Not Resolved]
  - Weight decreased [Not Recovered/Not Resolved]
  - Pica [Not Recovered/Not Resolved]
  - Gait disturbance [Not Recovered/Not Resolved]
  - Irritability [Not Recovered/Not Resolved]
  - Body height increased [Unknown]
  - Chills [Unknown]
  - Pyrexia [Not Recovered/Not Resolved]
  - Muscle spasticity [Recovered/Resolved]
  - Influenza [Not Recovered/Not Resolved]
  - Cough [Unknown]
  - Body height decreased [Unknown]
  - Off label use [Unknown]
  - Incorrect dose administered [Recovering/Resolving]
  - Inappropriate schedule of product administration [Unknown]

NARRATIVE: CASE EVENT DATE: 20200131
